FAERS Safety Report 8553536-6 (Version None)
Quarter: 2012Q3

REPORT INFORMATION
  Report Type: 
  Country: None (occurrence: None)
  Receive Date: 20120731
  Receipt Date: 20120726
  Transmission Date: 20120928
  Serious: Yes (Hospitalization, Other)
  Sender: FDA-Public Use
  Company Number: PR-ABBOTT-12P-131-0953307-00

PATIENT
  Sex: Male
  Weight: 84.444 kg

DRUGS (9)
  1. NORVASC [Concomitant]
     Indication: HYPERTENSION
     Route: 048
  2. DOXAZOSIN MESYLATE [Concomitant]
     Indication: HYPERTENSION
     Dosage: 8MG DAILY
     Route: 048
     Dates: end: 20120701
  3. HUMIRA [Suspect]
     Indication: RHEUMATOID ARTHRITIS
     Route: 058
     Dates: start: 20030101
  4. COZAAR [Concomitant]
     Indication: HYPERTENSION
  5. GLUCOTROL [Concomitant]
     Indication: DIABETES MELLITUS
  6. PREDNISONE TAB [Concomitant]
     Indication: RHEUMATOID ARTHRITIS
  7. HUMULIN R [Concomitant]
     Indication: DIABETES MELLITUS
  8. HUMULIN N [Concomitant]
     Indication: DIABETES MELLITUS
  9. METHOTREXATE [Concomitant]
     Indication: RHEUMATOID ARTHRITIS

REACTIONS (4)
  - BLOOD GLUCOSE INCREASED [None]
  - HYPERTENSION [None]
  - SKIN CANCER [None]
  - DERMATITIS ALLERGIC [None]
